FAERS Safety Report 7651669-X (Version None)
Quarter: 2011Q3

REPORT INFORMATION
  Report Type: 
  Country: None (occurrence: None)
  Receive Date: 20110802
  Receipt Date: 20110729
  Transmission Date: 20111222
  Serious: Yes (Other)
  Sender: FDA-Public Use
  Company Number: CA-ABBOTT-11P-028-0842939-00

PATIENT
  Age: 8 Year
  Sex: Female

DRUGS (1)
  1. LEUPRORELIN DEPOT-PED [Suspect]
     Indication: PRECOCIOUS PUBERTY

REACTIONS (1)
  - EPIPHYSIOLYSIS [None]
